FAERS Safety Report 9237930 (Version 1)
Quarter: 2013Q1

REPORT INFORMATION
  Report Type: Spontaneous
  Country: US (occurrence: None)
  Receive Date: 20121107
  Receipt Date: 20121107
  Transmission Date: 20140127
  Serious: No
  Sender: FDA-Public Use
  Company Number: 2012HGS-003734

PATIENT
  Age: 48 Year
  Sex: Female
  Weight: 85.28 kg

DRUGS (9)
  1. BENLYSTA [Suspect]
     Indication: SYSTEMIC LUPUS ERYTHEMATOSUS
     Dosage: 1 IN 28 D, INTRAVENOUS DRIP
     Route: 041
     Dates: start: 20120103
  2. HYDROXYCHLOROQUINE [Concomitant]
  3. ANTARA (FENOFIBRATE) (FENOFIBRATE) [Concomitant]
  4. SINGULAIR [Concomitant]
  5. CENTRUM (CENTRUM/00554501/) (VITAMINS NOS, MINERAL NOS) [Concomitant]
  6. CYMBALTA (DULOXETINE HYDROCHLORIDE) (DULOXETINE HYDROCHLORIDE) [Concomitant]
  7. SYNTHROID (LEVOTHYROXINE SODIUM) (LEVOTHYROXINE SODIUM) [Concomitant]
  8. FUROSEMIDE [Concomitant]
  9. CALCIUM (CALCIUM) (CALCIUM) [Concomitant]

REACTIONS (1)
  - Sinusitis [None]
